FAERS Safety Report 11582115 (Version 1)
Quarter: 2015Q4

REPORT INFORMATION
  Report Type: Spontaneous
  Country: US (occurrence: US)
  Receive Date: 20151001
  Receipt Date: 20151001
  Transmission Date: 20160304
  Serious: No
  Sender: FDA-Public Use
  Company Number: US-ROCHE-653633

PATIENT
  Age: 33 Year
  Sex: Female
  Weight: 51.7 kg

DRUGS (7)
  1. APAP [Concomitant]
     Active Substance: ACETAMINOPHEN
     Route: 065
  2. TOPAMAX [Concomitant]
     Active Substance: TOPIRAMATE
     Dosage: FREQUENCY: QD
     Route: 048
  3. RIBASPHERE RIBAPAK [Suspect]
     Active Substance: RIBAVIRIN
     Indication: HEPATITIS C
     Dosage: FORM: PILLS; DOSE: 2 PILLS A DAY;
     Route: 048
     Dates: start: 20090807, end: 20100128
  4. CELEXA [Concomitant]
     Active Substance: CITALOPRAM HYDROBROMIDE
     Dosage: FREQUENCY: QD
     Route: 048
  5. PEGASYS [Suspect]
     Active Substance: PEGINTERFERON ALFA-2A
     Indication: HEPATITIS C
     Dosage: FORM: PFS
     Route: 058
  6. PEGASYS [Suspect]
     Active Substance: PEGINTERFERON ALFA-2A
     Route: 058
  7. CHANTIX [Suspect]
     Active Substance: VARENICLINE TARTRATE
     Indication: EX-TOBACCO USER
     Route: 065

REACTIONS (17)
  - Insomnia [Recovering/Resolving]
  - Depression [Recovering/Resolving]
  - Anaemia [Recovering/Resolving]
  - Nausea [Recovering/Resolving]
  - Fatigue [Recovering/Resolving]
  - Migraine [Recovering/Resolving]
  - Epistaxis [Unknown]
  - Diarrhoea [Recovering/Resolving]
  - Headache [Unknown]
  - Fibromyalgia [Not Recovered/Not Resolved]
  - Malaise [Recovering/Resolving]
  - Dyspnoea [Recovering/Resolving]
  - Stress [Recovering/Resolving]
  - Joint swelling [Recovering/Resolving]
  - Wrong technique in product usage process [Unknown]
  - Alopecia [Recovering/Resolving]
  - Extra dose administered [Unknown]

NARRATIVE: CASE EVENT DATE: 20090915
